FAERS Safety Report 9713622 (Version 2)
Quarter: 2013Q4

REPORT INFORMATION
  Report Type: Report from Study
  Country: ES (occurrence: ES)
  Receive Date: 20131126
  Receipt Date: 20131215
  Transmission Date: 20140711
  Serious: Yes (Life-Threatening)
  Sender: FDA-Public Use
  Company Number: ES-PFIZER INC-2013334075

PATIENT
  Age: 48 Year
  Sex: Female

DRUGS (3)
  1. EXEMESTANE [Suspect]
     Indication: BREAST CANCER
     Dosage: 25 MG, UNK
     Route: 048
     Dates: start: 20081128, end: 20100920
  2. TRIPTORELIN PAMOATE [Suspect]
     Indication: BREAST CANCER
     Dosage: 3.75 MG, UNK
     Route: 030
     Dates: start: 20081128, end: 20100906
  3. LORAZEPAM [Concomitant]
     Indication: PROPHYLAXIS
     Dosage: UNK
     Dates: start: 200904

REACTIONS (1)
  - Suicide attempt [Recovered/Resolved]
